FAERS Safety Report 9645574 (Version 3)
Quarter: 2013Q4

REPORT INFORMATION
  Report Type: Spontaneous
  Country: DE (occurrence: DE)
  Receive Date: 20131025
  Receipt Date: 20131202
  Transmission Date: 20140711
  Serious: Yes (Other)
  Sender: FDA-Public Use
  Company Number: DE-JNJFOC-20131014098

PATIENT
  Age: 77 Year
  Sex: Male
  Weight: 93 kg

DRUGS (15)
  1. XARELTO [Suspect]
     Indication: CEREBROVASCULAR ACCIDENT PROPHYLAXIS
     Route: 048
     Dates: start: 201304, end: 20131017
  2. XARELTO [Suspect]
     Indication: ATRIAL FIBRILLATION
     Route: 048
     Dates: start: 201304, end: 20131017
  3. ATORVASTATIN [Concomitant]
     Route: 065
  4. AMLODIPINE [Concomitant]
     Route: 065
  5. L-THYROXINE [Concomitant]
     Route: 065
  6. TORASEMID [Concomitant]
     Route: 065
  7. ESOMEPRAZOLE [Concomitant]
     Route: 065
  8. METOHEXAL [Concomitant]
     Route: 065
  9. LIMPTAR [Concomitant]
     Route: 065
  10. TAXOFIT [Concomitant]
     Route: 065
  11. GRANUFINK [Concomitant]
     Route: 065
  12. ENAHEXAL (ENALAPRIL MALEATE) [Concomitant]
     Route: 065
  13. LANTUS [Concomitant]
     Route: 065
  14. PLAVIX [Concomitant]
     Route: 065
     Dates: start: 20130521
  15. CLEXANE [Concomitant]
     Route: 065

REACTIONS (2)
  - Platelet count decreased [Recovered/Resolved]
  - Haemoglobin decreased [Recovered/Resolved]
